FAERS Safety Report 15612443 (Version 1)
Quarter: 2018Q4

REPORT INFORMATION
  Report Type: Spontaneous
  Country: JP (occurrence: JP)
  Receive Date: 20181113
  Receipt Date: 20181113
  Transmission Date: 20190205
  Serious: Yes (Hospitalization)
  Sender: FDA-Public Use
  Company Number: JP-MYLANLABS-2018M1084809

PATIENT
  Age: 65 Year
  Sex: Male

DRUGS (16)
  1. PENICILLIN G [Suspect]
     Active Substance: PENICILLIN G
     Indication: STREPTOCOCCAL INFECTION
  2. CEFTAZIDIME. [Suspect]
     Active Substance: CEFTAZIDIME
     Indication: ENDOPHTHALMITIS
     Route: 050
  3. CEFTAZIDIME. [Suspect]
     Active Substance: CEFTAZIDIME
     Indication: STREPTOCOCCAL INFECTION
  4. OFLOXACIN. [Suspect]
     Active Substance: OFLOXACIN
     Indication: ENDOPHTHALMITIS
     Route: 047
  5. CEFTRIAXONE. [Suspect]
     Active Substance: CEFTRIAXONE
     Indication: ENDOPHTHALMITIS
     Route: 065
  6. VANCOMYCIN [Suspect]
     Active Substance: VANCOMYCIN
     Indication: STREPTOCOCCAL INFECTION
  7. OFLOXACIN. [Suspect]
     Active Substance: OFLOXACIN
     Indication: STREPTOCOCCAL INFECTION
  8. LEVOFLOXACIN. [Suspect]
     Active Substance: LEVOFLOXACIN
     Indication: STREPTOCOCCAL INFECTION
  9. AMPICILLIN [Suspect]
     Active Substance: AMPICILLIN
     Indication: ENDOPHTHALMITIS
     Route: 065
  10. AMPICILLIN [Suspect]
     Active Substance: AMPICILLIN
     Indication: STREPTOCOCCAL INFECTION
  11. GENTAMICIN. [Suspect]
     Active Substance: GENTAMICIN
     Indication: STREPTOCOCCAL INFECTION
  12. PENICILLIN G [Suspect]
     Active Substance: PENICILLIN G
     Indication: ENDOPHTHALMITIS
     Route: 065
  13. CEFTRIAXONE. [Suspect]
     Active Substance: CEFTRIAXONE
     Indication: STREPTOCOCCAL INFECTION
  14. VANCOMYCIN [Suspect]
     Active Substance: VANCOMYCIN
     Indication: ENDOPHTHALMITIS
     Route: 050
  15. LEVOFLOXACIN. [Suspect]
     Active Substance: LEVOFLOXACIN
     Indication: ENDOPHTHALMITIS
     Route: 047
  16. GENTAMICIN. [Suspect]
     Active Substance: GENTAMICIN
     Indication: ENDOPHTHALMITIS
     Route: 065

REACTIONS (1)
  - Drug ineffective [Unknown]
